FAERS Safety Report 10217964 (Version 1)
Quarter: 2014Q2

REPORT INFORMATION
  Report Type: Spontaneous
  Country: US (occurrence: US)
  Receive Date: 20140605
  Receipt Date: 20140605
  Transmission Date: 20141212
  Serious: Yes (Hospitalization)
  Sender: FDA-Public Use
  Company Number: US-BIOGENIDEC-2014BI051052

PATIENT
  Age: 58 Year
  Sex: Female

DRUGS (6)
  1. TECFIDERA [Suspect]
     Indication: MULTIPLE SCLEROSIS
     Route: 048
     Dates: start: 20140224
  2. ADVIL [Concomitant]
  3. AMANTADINE HCL [Concomitant]
  4. OXYBUTYNIN CHLORIDE [Concomitant]
  5. TIZANIDINE HCL [Concomitant]
  6. VITAMIN D [Concomitant]

REACTIONS (1)
  - Urinary tract infection [Not Recovered/Not Resolved]
